FAERS Safety Report 24982616 (Version 1)
Quarter: 2025Q1

REPORT INFORMATION
  Report Type: Spontaneous
  Country: DE (occurrence: DE)
  Receive Date: 20250218
  Receipt Date: 20250218
  Transmission Date: 20250409
  Serious: Yes (Life-Threatening, Hospitalization, Other)
  Sender: ELI LILLY AND COMPANY
  Company Number: None

PATIENT
  Age: 42 Year
  Sex: Male
  Weight: 95 kg

DRUGS (1)
  1. MOUNJARO [Suspect]
     Active Substance: TIRZEPATIDE
     Indication: Weight control
     Route: 058
     Dates: start: 20250201

REACTIONS (21)
  - Vomiting [Unknown]
  - Diarrhoea [Unknown]
  - Renal pain [Unknown]
  - Dizziness [Unknown]
  - Pallor [Unknown]
  - Asthenia [Unknown]
  - Syncope [Unknown]
  - Delirium [Unknown]
  - Fear of death [Unknown]
  - Cardiovascular disorder [Unknown]
  - Hyperkalaemia [Recovered/Resolved]
  - Hyperhidrosis [Recovered/Resolved]
  - Hypotension [Recovered/Resolved]
  - Hypothermia [Unknown]
  - Blood glucose increased [Unknown]
  - Electrolyte imbalance [Unknown]
  - Hyperhidrosis [Unknown]
  - Paraesthesia [Unknown]
  - Sinus tachycardia [Unknown]
  - Electrocardiogram QT prolonged [Unknown]
  - Renal impairment [Unknown]

NARRATIVE: CASE EVENT DATE: 20250204
